FAERS Safety Report 7612930-8 (Version None)
Quarter: 2011Q3

REPORT INFORMATION
  Report Type: 
  Country: None (occurrence: None)
  Receive Date: 20110708
  Receipt Date: 20110622
  Transmission Date: 20111222
  Serious: Yes (Other)
  Sender: FDA-Public Use
  Company Number: THQ2011A03275

PATIENT
  Sex: Male

DRUGS (3)
  1. ACTOS [Suspect]
     Dosage: PER ORAL
     Route: 048
     Dates: start: 20070101
  2. INSULIN GLARGINE [Concomitant]
  3. STATINS (HMG COA REDUCTASE INHIBITORS) [Concomitant]

REACTIONS (1)
  - BLADDER CANCER [None]
